FAERS Safety Report 15813769 (Version 1)
Quarter: 2019Q1

REPORT INFORMATION
  Report Type: Spontaneous
  Country: JP (occurrence: JP)
  Receive Date: 20190111
  Receipt Date: 20190111
  Transmission Date: 20190417
  Serious: Yes (Other)
  Sender: FDA-Public Use
  Company Number: JP-PFIZER INC-2018468602

PATIENT
  Age: 35 Year
  Sex: Female

DRUGS (6)
  1. EFFEXOR [Suspect]
     Active Substance: VENLAFAXINE HYDROCHLORIDE
     Indication: AUTONOMIC NERVOUS SYSTEM IMBALANCE
     Dosage: 37.5 MG, 1X/DAY
     Route: 048
     Dates: start: 20181025, end: 20181031
  2. XYZAL [Concomitant]
     Active Substance: LEVOCETIRIZINE DIHYDROCHLORIDE
     Indication: PRURITUS
     Dosage: 5 MG, 1X/DAY
     Route: 048
     Dates: start: 20150627
  3. DIAMOX [ACETAZOLAMIDE] [Concomitant]
     Dosage: UNK
     Route: 048
     Dates: start: 20181025, end: 20181101
  4. EFFEXOR [Suspect]
     Active Substance: VENLAFAXINE HYDROCHLORIDE
     Dosage: 225 MG, 1X/DAY
     Route: 048
     Dates: start: 20181105, end: 20181106
  5. EFFEXOR [Suspect]
     Active Substance: VENLAFAXINE HYDROCHLORIDE
     Dosage: 75 MG, 1X/DAY
     Route: 048
     Dates: start: 20181101, end: 20181104
  6. STRATTERA [Concomitant]
     Active Substance: ATOMOXETINE HYDROCHLORIDE
     Indication: AUTONOMIC NERVOUS SYSTEM IMBALANCE
     Dosage: 40 MG, UNK (80 MG IN TOTAL)
     Route: 048
     Dates: start: 20140911

REACTIONS (15)
  - Hypoaesthesia [Unknown]
  - Spinal pain [Not Recovered/Not Resolved]
  - Autonomic neuropathy [Unknown]
  - Diarrhoea [Unknown]
  - Increased appetite [Unknown]
  - Nausea [Unknown]
  - Pain in extremity [Recovered/Resolved]
  - Insomnia [Unknown]
  - Malaise [Unknown]
  - Myalgia [Recovering/Resolving]
  - Accommodation disorder [Unknown]
  - Paraesthesia [Recovered/Resolved]
  - Pruritus [Recovered/Resolved]
  - Chills [Unknown]
  - Hot flush [Unknown]

NARRATIVE: CASE EVENT DATE: 2018
